FAERS Safety Report 16813859 (Version 1)
Quarter: 2019Q3

REPORT INFORMATION
  Report Type: Report from Study
  Country: IL (occurrence: IL)
  Receive Date: 20190917
  Receipt Date: 20190917
  Transmission Date: 20191005
  Serious: Yes (Other)
  Sender: FDA-Public Use
  Company Number: IL-ROCHE-2400528

PATIENT
  Age: 74 Year
  Sex: Male

DRUGS (1)
  1. TECENTRIQ [Suspect]
     Active Substance: ATEZOLIZUMAB
     Indication: LUNG NEOPLASM MALIGNANT
     Route: 042

REACTIONS (4)
  - Paraneoplastic syndrome [Recovered/Resolved]
  - Neurological symptom [Unknown]
  - Confusional state [Unknown]
  - Infection [Unknown]

NARRATIVE: CASE EVENT DATE: 201903
